FAERS Safety Report 8154790-5 (Version None)
Quarter: 2012Q1

REPORT INFORMATION
  Report Type: 
  Country: None (occurrence: None)
  Receive Date: 20120221
  Receipt Date: 20120209
  Transmission Date: 20120608
  Serious: Yes (Other)
  Sender: FDA-Public Use
  Company Number: PHHO2012US002650

PATIENT
  Sex: Female

DRUGS (4)
  1. ASPIRIN [Concomitant]
  2. SODIUM CHLORIDE [Concomitant]
     Dosage: 1000 ML, UNK
     Route: 042
  3. NITROGLYCERIN [Concomitant]
  4. GILENYA [Suspect]
     Dosage: UNK
     Route: 048
     Dates: start: 20120206

REACTIONS (4)
  - NAUSEA [None]
  - CHEST PAIN [None]
  - VIRAL INFECTION [None]
  - DYSPNOEA [None]
